FAERS Safety Report 21050439 (Version 2)
Quarter: 2022Q3

REPORT INFORMATION
  Report Type: Spontaneous
  Country: NO (occurrence: NO)
  Receive Date: 20220707
  Receipt Date: 20220721
  Transmission Date: 20221027
  Serious: Yes (Life-Threatening)
  Sender: FDA-Public Use
  Company Number: None

PATIENT
  Age: 52 Year
  Sex: Female

DRUGS (1)
  1. TECFIDERA [Suspect]
     Active Substance: DIMETHYL FUMARATE
     Indication: Multiple sclerosis
     Dosage: TECFIDERA 240 MG X 2
     Route: 050
     Dates: start: 2014

REACTIONS (1)
  - Burkitt^s lymphoma [Not Recovered/Not Resolved]

NARRATIVE: CASE EVENT DATE: 20220101
